FAERS Safety Report 5849145-X (Version None)
Quarter: 2008Q3

REPORT INFORMATION
  Report Type: 
  Country: None (occurrence: None)
  Receive Date: 20080819
  Receipt Date: 20080721
  Transmission Date: 20090109
  Serious: No
  Sender: FDA-Public Use
  Company Number: US-BAYER-200829466NA

PATIENT
  Sex: Female

DRUGS (1)
  1. CIPRO [Suspect]
     Indication: INFECTION
     Dosage: UNIT DOSE: 500 MG

REACTIONS (2)
  - DYSPNOEA [None]
  - RASH [None]
